FAERS Safety Report 6993551-7 (Version None)
Quarter: 2010Q3

REPORT INFORMATION
  Report Type: 
  Country: None (occurrence: None)
  Receive Date: 20100917
  Receipt Date: 20090806
  Transmission Date: 20110219
  Serious: Yes (Other)
  Sender: FDA-Public Use
  Company Number: US-ASTRAZENECA-2009UW16227

PATIENT
  Age: 566 Month
  Sex: Male
  Weight: 113.4 kg

DRUGS (9)
  1. SEROQUEL [Suspect]
     Indication: SCHIZOPHRENIA, PARANOID TYPE
     Route: 048
     Dates: start: 20030301, end: 20070401
  2. SEROQUEL [Suspect]
     Indication: POST-TRAUMATIC STRESS DISORDER
     Route: 048
     Dates: start: 20030301, end: 20070401
  3. SEROQUEL [Suspect]
     Indication: SCHIZOPHRENIA
     Route: 048
     Dates: start: 20030301, end: 20070401
  4. SEROQUEL [Suspect]
     Route: 048
     Dates: start: 20030301, end: 20071001
  5. SEROQUEL [Suspect]
     Route: 048
     Dates: start: 20030301, end: 20071001
  6. SEROQUEL [Suspect]
     Route: 048
     Dates: start: 20030301, end: 20071001
  7. RISPERDAL [Concomitant]
     Dates: start: 20050101, end: 20080101
  8. RISPERDAL [Concomitant]
     Dates: start: 20060101, end: 20080101
  9. HALDOL [Concomitant]
     Dates: start: 19900101

REACTIONS (5)
  - ADVERSE DRUG REACTION [None]
  - BLOOD TRIGLYCERIDES INCREASED [None]
  - CEREBROVASCULAR ACCIDENT [None]
  - DIABETES MELLITUS [None]
  - OBESITY [None]
